FAERS Safety Report 6934811-5 (Version None)
Quarter: 2010Q3

REPORT INFORMATION
  Report Type: 
  Country: None (occurrence: None)
  Receive Date: 20100820
  Receipt Date: 20100805
  Transmission Date: 20110219
  Serious: Yes (Other)
  Sender: FDA-Public Use
  Company Number: PHHY2010CA51443

PATIENT
  Sex: Female

DRUGS (1)
  1. ZOLEDRONIC [Suspect]
     Indication: OSTEOPOROSIS
     Dosage: UNK
     Dates: start: 20090819

REACTIONS (4)
  - AMNESIA [None]
  - CEREBROVASCULAR ACCIDENT [None]
  - MALAISE [None]
  - PYREXIA [None]
